FAERS Safety Report 24706238 (Version 1)
Quarter: 2024Q4

REPORT INFORMATION
  Report Type: Spontaneous
  Country: US (occurrence: US)
  Receive Date: 20241206
  Receipt Date: 20241206
  Transmission Date: 20250115
  Serious: No
  Sender: BAYER HEALTHCARE PHARMACEUTICALS INC.
  Company Number: US-BAYER-2024A171902

PATIENT

DRUGS (4)
  1. ADEMPAS [Suspect]
     Active Substance: RIOCIGUAT
  2. Sotatercept csrk [Concomitant]
     Indication: Pulmonary arterial hypertension
  3. LETAIRIS [Concomitant]
     Active Substance: AMBRISENTAN
     Indication: Pulmonary arterial hypertension
  4. REMODULIN [Concomitant]
     Active Substance: TREPROSTINIL
     Indication: Pulmonary arterial hypertension

REACTIONS (1)
  - Adverse drug reaction [Unknown]
